FAERS Safety Report 12922733 (Version 1)
Quarter: 2016Q4

REPORT INFORMATION
  Report Type: Spontaneous
  Country: CN (occurrence: CN)
  Receive Date: 20161109
  Receipt Date: 20161109
  Transmission Date: 20170207
  Serious: Yes (Hospitalization, Other)
  Sender: FDA-Public Use
  Company Number: CN-ASTRAZENECA-2016SF17483

PATIENT
  Age: 1461 Day
  Sex: Female
  Weight: 25 kg

DRUGS (2)
  1. BUDESONIDE. [Suspect]
     Active Substance: BUDESONIDE
     Indication: BRONCHITIS
     Route: 055
     Dates: start: 20160525, end: 20160525
  2. BUDESONIDE. [Suspect]
     Active Substance: BUDESONIDE
     Indication: MYCOPLASMA INFECTION
     Route: 055
     Dates: start: 20160525, end: 20160525

REACTIONS (5)
  - Conjunctival hyperaemia [Recovered/Resolved]
  - Flushing [Recovered/Resolved]
  - Lacrimation increased [Recovered/Resolved]
  - Photophobia [Recovered/Resolved]
  - Pruritus [Recovered/Resolved]

NARRATIVE: CASE EVENT DATE: 20160525
